FAERS Safety Report 4287283-6 (Version None)
Quarter: 2004Q1

REPORT INFORMATION
  Report Type: 
  Country: None (occurrence: None)
  Receive Date: 20040126
  Receipt Date: 20030825
  Transmission Date: 20041129
  Serious: No
  Sender: FDA-Public Use
  Company Number: USA030741433

PATIENT
  Age: 69 Year
  Sex: Female
  Weight: 46 kg

DRUGS (5)
  1. EVISTA [Suspect]
     Dates: end: 20010101
  2. FORTEO [Suspect]
     Indication: OSTEOPOROSIS
     Dates: start: 20030809
  3. GLUCOSAMINE [Concomitant]
  4. CALCIUM [Concomitant]
  5. VITAMIN C [Concomitant]

REACTIONS (11)
  - ABDOMINAL PAIN UPPER [None]
  - ASTHENIA [None]
  - CONTUSION [None]
  - ERYTHEMA [None]
  - FATIGUE [None]
  - HEART RATE INCREASED [None]
  - HOT FLUSH [None]
  - MIDDLE INSOMNIA [None]
  - MUSCLE CRAMP [None]
  - NAUSEA [None]
  - PAIN [None]
